FAERS Safety Report 13842064 (Version 1)
Quarter: 2017Q3

REPORT INFORMATION
  Report Type: Report from Study
  Country: US (occurrence: US)
  Receive Date: 20170807
  Receipt Date: 20170807
  Transmission Date: 20171127
  Serious: Yes (Hospitalization)
  Sender: FDA-Public Use
  Company Number: US-GILEAD-2017-0284580

PATIENT
  Age: 74 Year
  Sex: Female
  Weight: 91.61 kg

DRUGS (10)
  1. ATORVASTATIN [Concomitant]
     Active Substance: ATORVASTATIN
  2. ADCIRCA [Concomitant]
     Active Substance: TADALAFIL
  3. NITROIMIDAZOLE DERIVATIVES [Concomitant]
  4. ATENOLOL. [Concomitant]
     Active Substance: ATENOLOL
  5. AMLODIPINE [Concomitant]
     Active Substance: AMLODIPINE BESYLATE
  6. AMBRISENTAN [Suspect]
     Active Substance: AMBRISENTAN
     Indication: PULMONARY ARTERIAL HYPERTENSION
     Dosage: 5 MG, UNK
     Route: 048
     Dates: start: 20170510, end: 20170720
  7. LASIX [Concomitant]
     Active Substance: FUROSEMIDE
  8. PLAVIX [Concomitant]
     Active Substance: CLOPIDOGREL BISULFATE
  9. SILDENAFIL. [Concomitant]
     Active Substance: SILDENAFIL
  10. ASA [Concomitant]
     Active Substance: ASPIRIN

REACTIONS (2)
  - Fluid retention [Recovered/Resolved]
  - Oxygen saturation decreased [Unknown]
